FAERS Safety Report 4582676-1 (Version None)
Quarter: 2005Q1

REPORT INFORMATION
  Report Type: 
  Country: None (occurrence: None)
  Receive Date: 20050215
  Receipt Date: 20050131
  Transmission Date: 20050727
  Serious: Yes (Hospitalization)
  Sender: FDA-Public Use
  Company Number: US-MERCK-0502USA00066

PATIENT
  Age: 59 Year
  Sex: Female

DRUGS (3)
  1. VYTORIN [Suspect]
     Route: 048
     Dates: start: 20040101, end: 20050101
  2. PLAVIX [Concomitant]
     Route: 065
  3. LOTREL [Concomitant]
     Route: 065

REACTIONS (2)
  - DIFFICULTY IN WALKING [None]
  - LIVER FUNCTION TEST ABNORMAL [None]
